FAERS Safety Report 4793529-8 (Version None)
Quarter: 2005Q4

REPORT INFORMATION
  Report Type: 
  Country: None (occurrence: None)
  Receive Date: 20051006
  Receipt Date: 20050601
  Transmission Date: 20060501
  Serious: Yes (Hospitalization, Other)
  Sender: FDA-Public Use
  Company Number: 18849

PATIENT
  Age: 43 Year
  Sex: Female

DRUGS (8)
  1. DOXORUBICIN HCL [Suspect]
     Dates: start: 20050418
  2. SEENA/DOCUSATE SODIUM [Concomitant]
  3. PEGFILGRASTIM [Concomitant]
  4. ALOXIPRIN [Concomitant]
  5. GRANISETRON [Concomitant]
  6. DEXAMETHASONE [Concomitant]
  7. CIMETIDINE [Concomitant]
  8. PROMETHAZINE [Concomitant]

REACTIONS (1)
  - FEBRILE NEUTROPENIA [None]
